FAERS Safety Report 15328694 (Version 1)
Quarter: 2018Q3

REPORT INFORMATION
  Report Type: Spontaneous
  Country: BR (occurrence: BR)
  Receive Date: 20180829
  Receipt Date: 20180829
  Transmission Date: 20181010
  Serious: Yes (Hospitalization)
  Sender: FDA-Public Use
  Company Number: BR-BAXTER-2018BAX022488

PATIENT
  Age: 41 Year
  Sex: Female
  Weight: 68 kg

DRUGS (6)
  1. DEXAMETHASONE. [Suspect]
     Active Substance: DEXAMETHASONE
     Indication: PROPHYLAXIS OF NAUSEA AND VOMITING
     Dosage: PER DAY, DURING 3 DAYS AFTER CHEMOTHERAPY
     Route: 065
     Dates: start: 201807
  2. GENUXAL [Suspect]
     Active Substance: CYCLOPHOSPHAMIDE
     Dosage: 10% DOSE REDUCTION, SECOND CYCLE OF TC PROTOCOL
     Route: 042
     Dates: start: 20180723
  3. TAXOTERE [Suspect]
     Active Substance: DOCETAXEL
     Indication: BREAST CANCER
     Dosage: FIRST CYCLE OF TC PROTOCOL
     Route: 042
     Dates: start: 20180702
  4. TAXOTERE [Suspect]
     Active Substance: DOCETAXEL
     Dosage: 10% DOSE REDUCTION, SECOND CYCLE OF TC PROTOCOL
     Route: 042
     Dates: start: 20180723
  5. NAUSEDRON [Suspect]
     Active Substance: ONDANSETRON HYDROCHLORIDE
     Indication: PROPHYLAXIS OF NAUSEA AND VOMITING
     Dosage: PER DAY, DURING 3 DAYS AFTER CHEMOTHERAPY
     Route: 065
     Dates: start: 201807
  6. GENUXAL [Suspect]
     Active Substance: CYCLOPHOSPHAMIDE
     Indication: BREAST CANCER
     Dosage: FIRST CYCLE OF TC PROTOCOL
     Route: 042
     Dates: start: 20180702

REACTIONS (3)
  - Urinary tract disorder [Recovered/Resolved]
  - Pyrexia [Recovered/Resolved]
  - Gastrointestinal disorder [Recovered/Resolved]

NARRATIVE: CASE EVENT DATE: 20180711
